FAERS Safety Report 7157881-0 (Version None)
Quarter: 2010Q4

REPORT INFORMATION
  Report Type: 
  Country: None (occurrence: None)
  Receive Date: 20101214
  Receipt Date: 20101207
  Transmission Date: 20110411
  Serious: Yes (Disabling, Other)
  Sender: FDA-Public Use
  Company Number: GB-PFIZER INC-2010121358

PATIENT
  Age: 85 Year
  Sex: Female
  Weight: 56.6 kg

DRUGS (1)
  1. LYRICA [Suspect]
     Indication: NEURALGIA
     Dosage: 25 MG, UNK
     Route: 048
     Dates: start: 20100921, end: 20100922

REACTIONS (2)
  - DYSSTASIA [None]
  - IMMOBILE [None]
